FAERS Safety Report 10036082 (Version 3)
Quarter: 2014Q2

REPORT INFORMATION
  Report Type: Report from Study
  Country: US (occurrence: US)
  Receive Date: 20140325
  Receipt Date: 20140530
  Transmission Date: 20141212
  Serious: Yes (Hospitalization)
  Sender: FDA-Public Use
  Company Number: US-PFIZER INC-2014076873

PATIENT
  Age: 71 Year
  Sex: Female
  Weight: 78.5 kg

DRUGS (6)
  1. AXITINIB [Suspect]
     Indication: CARCINOID TUMOUR OF THE SMALL BOWEL
     Dosage: 5 MG, 2X/DAY
     Route: 048
     Dates: start: 20140123
  2. AXITINIB [Suspect]
     Dosage: 3 MG, 2X/DAY
     Route: 048
     Dates: start: 20140204, end: 20140310
  3. ASPIRIN [Concomitant]
     Dosage: 81 MG, DAILY
     Route: 048
  4. METOPROLOL [Concomitant]
     Dosage: 50 MG,BID
     Route: 048
  5. OCTREOTIDE [Concomitant]
     Dosage: 30 MG, MONTHLY INJECTION
  6. LISINOPRIL [Concomitant]
     Dosage: 10 MG, DAILY
     Route: 048

REACTIONS (8)
  - Atrial fibrillation [Recovered/Resolved]
  - Hyponatraemia [Recovered/Resolved]
  - Hyperbilirubinaemia [Recovered/Resolved]
  - Fatigue [Not Recovered/Not Resolved]
  - Dehydration [Recovered/Resolved]
  - Leukocytosis [Recovered/Resolved]
  - Urinary tract infection [Recovered/Resolved]
  - Abdominal pain [Not Recovered/Not Resolved]
